FAERS Safety Report 4827653-8 (Version None)
Quarter: 2005Q4

REPORT INFORMATION
  Report Type: 
  Country: None (occurrence: None)
  Receive Date: 20051114
  Receipt Date: 20050725
  Transmission Date: 20060501
  Serious: Yes (Hospitalization)
  Sender: FDA-Public Use
  Company Number: US-MERCK-0507USA03908

PATIENT
  Age: 44 Year
  Sex: Male
  Weight: 118 kg

DRUGS (42)
  1. VIOXX [Suspect]
     Indication: ARTHRALGIA
     Route: 048
     Dates: start: 19990901, end: 19990901
  2. VIOXX [Suspect]
     Route: 048
     Dates: start: 20030101, end: 20040901
  3. VIOXX [Suspect]
     Indication: OSTEOARTHRITIS
     Route: 048
     Dates: start: 19990901, end: 19990901
  4. VIOXX [Suspect]
     Route: 048
     Dates: start: 20030101, end: 20040901
  5. LISINOPRIL [Concomitant]
     Indication: HYPERTENSION
     Route: 065
     Dates: start: 20030501
  6. ATENOLOL [Concomitant]
     Indication: HYPERTENSION
     Route: 065
     Dates: start: 20030501, end: 20030401
  7. ACCUPRIL [Concomitant]
     Indication: HYPERTENSION
     Route: 065
     Dates: start: 20030301, end: 20030401
  8. COUMADIN [Concomitant]
     Route: 065
     Dates: start: 20030501
  9. LOVENOX [Concomitant]
     Indication: MYOCARDIAL INFARCTION
     Route: 065
     Dates: start: 20030901, end: 20031201
  10. ASPIRIN [Concomitant]
     Indication: PROPHYLAXIS
     Route: 065
     Dates: start: 20030501
  11. PLAVIX [Concomitant]
     Indication: MYOCARDIAL INFARCTION
     Route: 065
     Dates: start: 20030501, end: 20031201
  12. LIPITOR [Concomitant]
     Indication: BLOOD CHOLESTEROL INCREASED
     Route: 065
     Dates: start: 20030501
  13. ZETIA [Concomitant]
     Indication: BLOOD CHOLESTEROL INCREASED
     Route: 065
     Dates: start: 20031101
  14. IBUPROFEN [Concomitant]
     Indication: BACK PAIN
     Route: 065
     Dates: start: 20021101, end: 20030201
  15. IBUPROFEN [Concomitant]
     Indication: ARTHRALGIA
     Route: 065
     Dates: start: 20021101, end: 20030201
  16. GABAPENTIN [Concomitant]
     Indication: BACK PAIN
     Route: 065
     Dates: start: 20021101, end: 20030301
  17. GABAPENTIN [Concomitant]
     Indication: ARTHRALGIA
     Route: 065
     Dates: start: 20021101, end: 20030301
  18. VICODIN [Concomitant]
     Indication: BACK PAIN
     Route: 065
     Dates: start: 19990101, end: 19990401
  19. VICODIN [Concomitant]
     Indication: ARTHRALGIA
     Route: 065
     Dates: start: 19990101, end: 19990401
  20. DAYPRO [Concomitant]
     Indication: BACK PAIN
     Route: 065
     Dates: start: 19990501, end: 19990701
  21. DAYPRO [Concomitant]
     Indication: ARTHRALGIA
     Route: 065
     Dates: start: 19990501, end: 19990701
  22. LORTAB [Concomitant]
     Indication: BACK PAIN
     Route: 065
     Dates: start: 19990701, end: 19990901
  23. LORTAB [Concomitant]
     Indication: ARTHRALGIA
     Route: 065
     Dates: start: 19990701, end: 19990901
  24. LORAZEPAM [Concomitant]
     Indication: DEPRESSION
     Route: 065
     Dates: start: 20030501, end: 20030501
  25. MIRTAZAPINE [Concomitant]
     Indication: DEPRESSION
     Route: 065
     Dates: start: 20021201
  26. ZOLOFT [Concomitant]
     Indication: DEPRESSION
     Route: 065
     Dates: start: 20021201
  27. ZOLOFT [Concomitant]
     Indication: ANXIETY DISORDER
     Route: 065
     Dates: start: 20021201
  28. DIVALPROEX SODIUM [Concomitant]
     Indication: ALCOHOLISM
     Route: 065
     Dates: start: 20040901
  29. DIVALPROEX SODIUM [Concomitant]
     Indication: DRUG ABUSER
     Route: 065
     Dates: start: 20040901
  30. CLONAZEPAM [Concomitant]
     Indication: ALCOHOLISM
     Route: 065
     Dates: start: 20030501, end: 20040901
  31. CLONAZEPAM [Concomitant]
     Indication: DRUG ABUSER
     Route: 065
     Dates: start: 20030501, end: 20040901
  32. ELAVIL [Concomitant]
     Indication: DEPRESSION
     Route: 065
     Dates: start: 19990101, end: 19990101
  33. PANTOPRAZOLE [Concomitant]
     Route: 065
  34. PREVPAC [Concomitant]
     Route: 065
  35. LANSOPRAZOLE [Concomitant]
     Route: 065
  36. TRIAMCINOLONE [Concomitant]
     Route: 065
  37. AZELASTINE HYDROCHLORIDE [Concomitant]
     Route: 065
  38. HALOBETASOL PROPIONATE [Concomitant]
     Route: 065
  39. CLOBETASOL PROPIONATE [Concomitant]
     Route: 065
  40. NITROGLYCERIN [Concomitant]
     Route: 065
  41. TACROLIMUS [Concomitant]
     Route: 065
  42. MOMETASONE FUROATE [Concomitant]
     Route: 065

REACTIONS (24)
  - ABDOMINAL PAIN [None]
  - ACUTE MYOCARDIAL INFARCTION [None]
  - ANAEMIA [None]
  - BLOOD GLUCOSE INCREASED [None]
  - BLOOD PRESSURE INCREASED [None]
  - BRONCHITIS ACUTE [None]
  - CHEST PAIN [None]
  - CORONARY ARTERY OCCLUSION [None]
  - DEPRESSION [None]
  - DRESSLER'S SYNDROME [None]
  - DYSHIDROSIS [None]
  - DYSPNOEA [None]
  - GOUT [None]
  - HYPERLIPIDAEMIA [None]
  - OBESITY [None]
  - PAIN [None]
  - PAIN IN EXTREMITY [None]
  - PEPTIC ULCER [None]
  - PLATELET AGGREGATION INCREASED [None]
  - PNEUMONIA [None]
  - POLYSUBSTANCE ABUSE [None]
  - PSORIASIS [None]
  - RHINITIS ALLERGIC [None]
  - VIRAL INFECTION [None]
